FAERS Safety Report 6554123-1 (Version None)
Quarter: 2010Q1

REPORT INFORMATION
  Report Type: 
  Country: None (occurrence: None)
  Receive Date: 20100127
  Receipt Date: 20100122
  Transmission Date: 20100710
  Serious: Yes (Other)
  Sender: FDA-Public Use
  Company Number: US-BRISTOL-MYERS SQUIBB COMPANY-14945257

PATIENT
  Age: 55 Year
  Sex: Female
  Weight: 73 kg

DRUGS (7)
  1. TRAZODONE HCL [Suspect]
     Indication: INSOMNIA
     Dosage: 3-4 TIMES PER WEEK AND THEN TOOK IT NIGHTLY
     Dates: start: 20090101
  2. ATENOLOL [Concomitant]
  3. PLAVIX [Concomitant]
     Route: 048
  4. ZOCOR [Concomitant]
  5. ALTACE [Concomitant]
  6. LANTUS [Concomitant]
  7. ASPIRIN [Concomitant]

REACTIONS (2)
  - LOWER LIMB FRACTURE [None]
  - SOMNAMBULISM [None]
